FAERS Safety Report 12716292 (Version 1)
Quarter: 2016Q3

REPORT INFORMATION
  Report Type: Other
  Country: None (occurrence: US)
  Receive Date: 20160906
  Receipt Date: 20160906
  Transmission Date: 20161109
  Serious: No
  Sender: FDA-Public Use
  Company Number: US-COL_11974_2012

PATIENT
  Sex: Female

DRUGS (3)
  1. COLGATE TOTAL ADVANCED WHITENING [Suspect]
     Active Substance: SODIUM FLUORIDE\TRICLOSAN
     Indication: GINGIVITIS
     Dosage: NI/NI/
     Route: 048
  2. COLGATE TOTAL ADVANCED WHITENING [Suspect]
     Active Substance: SODIUM FLUORIDE\TRICLOSAN
     Indication: DENTAL PLAQUE
     Dosage: NI/NI/
     Route: 048
  3. COLGATE TOTAL ADVANCED WHITENING [Suspect]
     Active Substance: SODIUM FLUORIDE\TRICLOSAN
     Indication: DENTAL CARIES
     Dosage: NI/NI/
     Route: 048

REACTIONS (2)
  - Gingival discolouration [Unknown]
  - Gingival discomfort [Unknown]
